FAERS Safety Report 5373254-5 (Version None)
Quarter: 2007Q2

REPORT INFORMATION
  Report Type: 
  Country: None (occurrence: None)
  Receive Date: 20070628
  Receipt Date: 20070620
  Transmission Date: 20071010
  Serious: Yes (Other)
  Sender: FDA-Public Use
  Company Number: PHBS2007JP10650

PATIENT
  Age: 23 Year
  Sex: Female

DRUGS (3)
  1. VOLTAREN [Suspect]
     Indication: FLANK PAIN
     Route: 048
     Dates: start: 20070531, end: 20070602
  2. STROCAIN [Suspect]
     Indication: FLANK PAIN
     Dates: start: 20070601
  3. MARZULENE [Suspect]
     Indication: FLANK PAIN
     Dates: start: 20070601

REACTIONS (5)
  - ALANINE AMINOTRANSFERASE INCREASED [None]
  - ASPARTATE AMINOTRANSFERASE INCREASED [None]
  - DISCOMFORT [None]
  - HEPATITIS [None]
  - HEPATITIS C POSITIVE [None]
